FAERS Safety Report 8749297 (Version 3)
Quarter: 2013Q4

REPORT INFORMATION
  Report Type: Spontaneous
  Country: US (occurrence: None)
  Receive Date: 20120805
  Receipt Date: 20131018
  Transmission Date: 20140711
  Serious: Yes (Disabling, Other)
  Sender: FDA-Public Use
  Company Number: 2012032936

PATIENT
  Age: 56 Year
  Sex: Female
  Weight: 81.65 kg

DRUGS (17)
  1. HIZENTRA [Suspect]
     Indication: IMMUNODEFICIENCY COMMON VARIABLE
     Dosage: (8 G, ??-SEP-2011 SUBCUTANEOUS), (SUBCUTANEOUS), (3 G 2X/WEEK SUBCUTANEOUS)
     Route: 058
     Dates: start: 201109
  2. ARMOUR THYROID [Concomitant]
  3. ALLEGRA [Concomitant]
  4. PREVACID [Concomitant]
  5. VERAMYST (FLUTICASONE) [Concomitant]
  6. SINGULAIR [Concomitant]
  7. PROVENTIL [Concomitant]
  8. PREDNISONE [Concomitant]
  9. HYDROCORTONE [Concomitant]
  10. LUNESTA [Concomitant]
  11. FUROSEMIDE (FUROSEMIDE) [Concomitant]
  12. MECLIZINE [Concomitant]
  13. PATADAY (OLOPATADINE) [Concomitant]
  14. VIVELLE [Concomitant]
  15. ALBUTEROL (SALBUTAMOL) [Concomitant]
  16. PROGESTERONE [Concomitant]
  17. IPRATROPIUM BROMIDE [Concomitant]

REACTIONS (13)
  - Pyrexia [None]
  - Chills [None]
  - Nausea [None]
  - Swelling [None]
  - Erythema [None]
  - Pruritus [None]
  - Oedema [None]
  - Back pain [None]
  - Fatigue [None]
  - Myalgia [None]
  - Malaise [None]
  - Flank pain [None]
  - Injection site pruritus [None]
